FAERS Safety Report 4784134-8 (Version None)
Quarter: 2005Q3

REPORT INFORMATION
  Report Type: 
  Country: None (occurrence: None)
  Receive Date: 20050930
  Receipt Date: 20050714
  Transmission Date: 20060218
  Serious: Yes (Hospitalization)
  Sender: FDA-Public Use
  Company Number: US-GLAXOSMITHKLINE-A0566227A

PATIENT
  Age: 70 Year
  Sex: Female

DRUGS (4)
  1. FLOVENT [Suspect]
     Indication: ASTHMA
     Dosage: 2SPR TWICE PER DAY
     Route: 055
     Dates: start: 20050628
  2. MAXZIDE [Concomitant]
  3. ACCOLATE [Concomitant]
  4. NEXIUM [Concomitant]

REACTIONS (1)
  - CHEST DISCOMFORT [None]
